FAERS Safety Report 4593388-2 (Version None)
Quarter: 2005Q1

REPORT INFORMATION
  Report Type: 
  Country: None (occurrence: None)
  Receive Date: 20050224
  Receipt Date: 20040527
  Transmission Date: 20050727
  Serious: No
  Sender: FDA-Public Use
  Company Number: US-BRISTOL-MYERS SQUIBB COMPANY-12599734

PATIENT
  Age: 26 Year
  Sex: Female
  Weight: 66 kg

DRUGS (3)
  1. EXCEDRIN (MIGRAINE) [Suspect]
     Indication: BACK PAIN
     Route: 048
     Dates: start: 20040526
  2. ALEVE [Suspect]
     Indication: BACK PAIN
     Route: 048
     Dates: start: 20040526
  3. CONTRACEPTIVE [Concomitant]
     Route: 048

REACTIONS (2)
  - ABDOMINAL PAIN UPPER [None]
  - RECTAL HAEMORRHAGE [None]
